FAERS Safety Report 6723606-3 (Version None)
Quarter: 2010Q2

REPORT INFORMATION
  Report Type: 
  Country: None (occurrence: None)
  Receive Date: 20100513
  Receipt Date: 20100503
  Transmission Date: 20101027
  Serious: Yes (Hospitalization)
  Sender: FDA-Public Use
  Company Number: ZA-NOVOPROD-285672

PATIENT
  Sex: Female
  Weight: 91 kg

DRUGS (4)
  1. LEVEMIR [Suspect]
     Indication: DRUG USE FOR UNKNOWN INDICATION
     Dosage: 21 IU, QD
     Route: 058
     Dates: start: 20080701
  2. NOVORAPID [Suspect]
     Indication: DRUG USE FOR UNKNOWN INDICATION
     Dosage: 27 IU, QD
     Route: 058
     Dates: start: 20080701
  3. PROZAC                             /00724401/ [Concomitant]
     Dosage: 60 MG, QD
     Route: 048
     Dates: start: 20040101
  4. ZYPREXA [Concomitant]
     Dosage: 5 MG, QD
     Route: 048
     Dates: start: 20040101

REACTIONS (3)
  - ANTEPARTUM HAEMORRHAGE [None]
  - PLACENTA PRAEVIA [None]
  - PREGNANCY [None]
